FAERS Safety Report 9509745 (Version 2)
Quarter: 2013Q4

REPORT INFORMATION
  Report Type: Spontaneous
  Country: IE (occurrence: IE)
  Receive Date: 20130909
  Receipt Date: 20131111
  Transmission Date: 20140711
  Serious: Yes (Other)
  Sender: FDA-Public Use
  Company Number: IE-B.I. PHARMACEUTICALS,INC./RIDGEFIELD-2013-BI-27464UK

PATIENT
  Age: 73 Year
  Sex: Male

DRUGS (5)
  1. PRADAXA [Suspect]
     Indication: ATRIAL FIBRILLATION
     Dosage: 220 MG
  2. ATORVASTATIN [Concomitant]
  3. AMLODIPINE [Concomitant]
  4. NEXIUM [Concomitant]
  5. APROVEL [Concomitant]

REACTIONS (3)
  - Cerebral infarction [Unknown]
  - Hemiparesis [Recovered/Resolved]
  - Aphasia [Recovered/Resolved]
